FAERS Safety Report 7524384-0 (Version None)
Quarter: 2011Q2

REPORT INFORMATION
  Report Type: 
  Country: None (occurrence: None)
  Receive Date: 20110606
  Receipt Date: 20100125
  Transmission Date: 20111010
  Serious: No
  Sender: FDA-Public Use
  Company Number: 2010BI002707

PATIENT
  Sex: Male

DRUGS (1)
  1. TYSABRI [Suspect]
     Indication: MULTIPLE SCLEROSIS
     Route: 042
     Dates: start: 20071019

REACTIONS (5)
  - MOBILITY DECREASED [None]
  - MUSCULOSKELETAL STIFFNESS [None]
  - ASTHENIA [None]
  - HEMIPARESIS [None]
  - MULTIPLE SCLEROSIS [None]
